FAERS Safety Report 6683027-9 (Version None)
Quarter: 2010Q2

REPORT INFORMATION
  Report Type: 
  Country: None (occurrence: None)
  Receive Date: 20100415
  Receipt Date: 20100409
  Transmission Date: 20101027
  Serious: Yes (Death, Hospitalization)
  Sender: FDA-Public Use
  Company Number: CA-BAYER-201018588NA

PATIENT
  Age: 65 Year
  Sex: Male
  Weight: 73 kg

DRUGS (2)
  1. SORAFENIB [Suspect]
     Indication: NON-SMALL CELL LUNG CANCER
     Dosage: TOTAL DAILY DOSE: 400 MG  UNIT DOSE: 200 MG
     Route: 048
     Dates: start: 20091119
  2. DOXORUBICIN HCL [Suspect]
     Indication: NON-SMALL CELL LUNG CANCER
     Dosage: OVER 60 MINUTES ON DAY 1 AND DAY 15 OF EACH CYCLE
     Route: 042
     Dates: start: 20091118

REACTIONS (3)
  - HAEMOPTYSIS [None]
  - LOSS OF CONSCIOUSNESS [None]
  - NON-SMALL CELL LUNG CANCER [None]
